FAERS Safety Report 17815596 (Version 1)
Quarter: 2020Q2

REPORT INFORMATION
  Report Type: Spontaneous
  Country: US (occurrence: US)
  Receive Date: 20200521
  Receipt Date: 20200521
  Transmission Date: 20200714
  Serious: Yes (Death)
  Sender: FDA-Public Use
  Company Number: None

PATIENT
  Sex: Male

DRUGS (7)
  1. HYDROMORPHON [Concomitant]
     Active Substance: HYDROMORPHONE
  2. OMEPRAZOLE. [Concomitant]
     Active Substance: OMEPRAZOLE
  3. AMLODIPINE [Concomitant]
     Active Substance: AMLODIPINE BESYLATE
  4. EVEROLIMUS 5MG (7 TAB/CARD) [Suspect]
     Active Substance: EVEROLIMUS
     Route: 048
     Dates: start: 20200417
  5. ONDANSETRON [Concomitant]
     Active Substance: ONDANSETRON
  6. FENTANYL. [Concomitant]
     Active Substance: FENTANYL
  7. METOCLOPRAM [Concomitant]
     Active Substance: METOCLOPRAMIDE

REACTIONS (1)
  - Death [None]
